FAERS Safety Report 25924680 (Version 1)
Quarter: 2025Q4

REPORT INFORMATION
  Report Type: Spontaneous
  Country: US (occurrence: None)
  Receive Date: 20251014
  Receipt Date: 20251014
  Transmission Date: 20260117
  Serious: Yes (Hospitalization)
  Sender: FDA-CTU
  Company Number: None

PATIENT
  Sex: Female

DRUGS (2)
  1. AMBRISENTAN [Suspect]
     Active Substance: AMBRISENTAN
     Indication: Pulmonary arterial hypertension
     Dosage: 10 MG DAIL ORAL
     Route: 048
     Dates: start: 20201027
  2. REMODULIN [Suspect]
     Active Substance: TREPROSTINIL

REACTIONS (3)
  - Dialysis [None]
  - Hip fracture [None]
  - Weight fluctuation [None]
